FAERS Safety Report 9707768 (Version 1)
Quarter: 2013Q4

REPORT INFORMATION
  Report Type: Spontaneous
  Country: US (occurrence: None)
  Receive Date: 20131122
  Receipt Date: 20131122
  Transmission Date: 20140711
  Serious: Yes (Hospitalization)
  Sender: FDA-Public Use
  Company Number: None

PATIENT
  Age: 53 Year
  Sex: Male
  Weight: 112.4 kg

DRUGS (2)
  1. LISINOPRIL [Suspect]
     Indication: HYPERTENSION
     Route: 048
     Dates: start: 20110908, end: 20131112
  2. LISINOPRIL [Suspect]
     Indication: DIABETES MELLITUS
     Route: 048
     Dates: start: 20110908, end: 20131112

REACTIONS (3)
  - Lip swelling [None]
  - Gingival swelling [None]
  - Angioedema [None]
